FAERS Safety Report 15330270 (Version 1)
Quarter: 2018Q3

REPORT INFORMATION
  Report Type: Spontaneous
  Country: US (occurrence: US)
  Receive Date: 20180829
  Receipt Date: 20180829
  Transmission Date: 20181010
  Serious: No
  Sender: FDA-Public Use
  Company Number: US-SA-2018SA227907

PATIENT
  Age: 64 Year
  Sex: Female

DRUGS (1)
  1. TOUJEO [Suspect]
     Active Substance: INSULIN GLARGINE
     Indication: TYPE 2 DIABETES MELLITUS
     Dosage: 50?60 UNITS, QD
     Route: 065

REACTIONS (4)
  - Hypersensitivity [Unknown]
  - Cough [Unknown]
  - Unevaluable event [Unknown]
  - Device operational issue [Unknown]

NARRATIVE: CASE EVENT DATE: 20180814
